FAERS Safety Report 4628584-9 (Version None)
Quarter: 2005Q2

REPORT INFORMATION
  Report Type: 
  Country: None (occurrence: None)
  Receive Date: 20050404
  Receipt Date: 20050318
  Transmission Date: 20051028
  Serious: No
  Sender: FDA-Public Use
  Company Number: DE-2005-001723

PATIENT
  Age: 35 Year
  Sex: Female
  Weight: 64 kg

DRUGS (5)
  1. BETASERON [Suspect]
     Indication: MULTIPLE SCLEROSIS
     Dosage: SEE IMAGE
     Route: 058
     Dates: start: 20020501, end: 20050211
  2. PARACETAMOL [Concomitant]
  3. ALESSE [Concomitant]
  4. L-THYROXINE (LEVOTHYROXINE) [Concomitant]
  5. JODID (POTASSIUM IODIDE) [Concomitant]

REACTIONS (2)
  - INJECTION SITE INDURATION [None]
  - NECROSIS [None]
